FAERS Safety Report 15734137 (Version 2)
Quarter: 2019Q2

REPORT INFORMATION
  Report Type: Spontaneous
  Country: US (occurrence: US)
  Receive Date: 20181218
  Receipt Date: 20190410
  Transmission Date: 20190711
  Serious: No
  Sender: FDA-Public Use
  Company Number: US-009507513-1812USA005212

PATIENT
  Age: 16 Year
  Sex: Female
  Weight: 61.22 kg

DRUGS (1)
  1. NEXPLANON [Suspect]
     Active Substance: ETONOGESTREL
     Indication: CONTRACEPTION
     Dosage: 1 ROD, UNK
     Route: 059
     Dates: start: 201811

REACTIONS (3)
  - Menstrual disorder [Unknown]
  - Menorrhagia [Unknown]
  - Menstruation normal [Unknown]

NARRATIVE: CASE EVENT DATE: 20181206
